FAERS Safety Report 22000392 (Version 7)
Quarter: 2024Q4

REPORT INFORMATION
  Report Type: Spontaneous
  Country: US (occurrence: US)
  Receive Date: 20230216
  Receipt Date: 20241125
  Transmission Date: 20250115
  Serious: No
  Sender: PFIZER
  Company Number: US-PFIZER INC-PV202300029835

PATIENT
  Age: 75 Year
  Sex: Female

DRUGS (2)
  1. IBRANCE [Suspect]
     Active Substance: PALBOCICLIB
     Indication: Neoplasm malignant
     Dosage: 100 MG
  2. IBRANCE [Suspect]
     Active Substance: PALBOCICLIB
     Dosage: 75 MG, CYCLIC [75 MG TABLET TAKE DAYS 1-21 AND 1 WEEK OFF]

REACTIONS (5)
  - Cough [Unknown]
  - Dyspnoea [Unknown]
  - Fatigue [Unknown]
  - Memory impairment [Unknown]
  - Product prescribing error [Unknown]
